FAERS Safety Report 8364483-7 (Version None)
Quarter: 2012Q2

REPORT INFORMATION
  Report Type: 
  Country: None (occurrence: None)
  Receive Date: 20120516
  Receipt Date: 20120510
  Transmission Date: 20120825
  Serious: Yes (Hospitalization)
  Sender: FDA-Public Use
  Company Number: US-BAYER-2012-047271

PATIENT
  Age: 32 Year
  Sex: Female
  Weight: 65.306 kg

DRUGS (13)
  1. FLORINEF [Concomitant]
     Dosage: 0.05 MG, BID
     Route: 048
  2. RITALIN [Concomitant]
     Dosage: 10 MG, TID
     Route: 048
  3. YAZ [Suspect]
     Dosage: UNK
  4. YASMIN [Suspect]
  5. KLONOPIN [Concomitant]
     Dosage: 1 MG, QD
     Route: 048
  6. ASCORBIC ACID [Concomitant]
  7. DROSPIRENONE AND ETHINYL ESTRADIOL [Suspect]
  8. MIDODRINE HYDROCHLORIDE [Concomitant]
     Dosage: 2.5 MG, BID
     Route: 048
  9. VICODIN [Concomitant]
  10. LORTAB [Concomitant]
  11. MORPHINE [Concomitant]
  12. CELEXA [Concomitant]
     Dosage: 40 MG, QD
     Route: 048
  13. PHENOBARBITAL TAB [Concomitant]
     Dosage: 15 MG, HS

REACTIONS (1)
  - PULMONARY EMBOLISM [None]
